FAERS Safety Report 7795862-4 (Version None)
Quarter: 2011Q4

REPORT INFORMATION
  Report Type: 
  Country: None (occurrence: None)
  Receive Date: 20111004
  Receipt Date: 20110923
  Transmission Date: 20120403
  Serious: Yes (Other)
  Sender: FDA-Public Use
  Company Number: CA-JNJFOC-20110911126

PATIENT
  Sex: Female
  Weight: 85.5 kg

DRUGS (6)
  1. ALL OTHER THERAPEUTIC PRODUCTS [Concomitant]
  2. REMICADE [Suspect]
     Indication: CROHN'S DISEASE
     Route: 042
     Dates: start: 20101020
  3. PENTASA [Concomitant]
  4. MERCAPTOPURINE [Concomitant]
  5. CIPROFLOXACIN [Concomitant]
  6. PREDNISONE [Concomitant]

REACTIONS (1)
  - GOUT [None]
